FAERS Safety Report 5255872-8 (Version None)
Quarter: 2007Q1

REPORT INFORMATION
  Report Type: 
  Country: None (occurrence: None)
  Receive Date: 20070301
  Receipt Date: 20070214
  Transmission Date: 20070707
  Serious: Yes (Hospitalization)
  Sender: FDA-Public Use
  Company Number: 2007PV030512

PATIENT
  Age: 53 Year
  Sex: Male

DRUGS (4)
  1. BYETTA [Suspect]
     Indication: DIABETES MELLITUS
     Dosage: 10 MCG; BID; SC
     Route: 058
     Dates: start: 20061129, end: 20070201
  2. METFORMIN HCL [Concomitant]
  3. LIPITOR [Concomitant]
  4. UNSPECIFIED BLOOD PRESSURE MEDICATION [Concomitant]

REACTIONS (1)
  - DIABETIC KETOACIDOSIS [None]
